FAERS Safety Report 6449740-3 (Version None)
Quarter: 2009Q4

REPORT INFORMATION
  Report Type: 
  Country: None (occurrence: None)
  Receive Date: 20091120
  Receipt Date: 20091109
  Transmission Date: 20100525
  Serious: Yes (Hospitalization)
  Sender: FDA-Public Use
  Company Number: US-WATSON-2009-09618

PATIENT
  Age: 67 Year
  Sex: Female

DRUGS (1)
  1. METRONIDAZOLE [Suspect]
     Indication: CLOSTRIDIAL INFECTION
     Dosage: UNK

REACTIONS (3)
  - DIARRHOEA [None]
  - KLEBSIELLA INFECTION [None]
  - PSEUDOMEMBRANOUS COLITIS [None]
